FAERS Safety Report 24147849 (Version 1)
Quarter: 2024Q3

REPORT INFORMATION
  Report Type: Spontaneous
  Country: US (occurrence: None)
  Receive Date: 20240729
  Receipt Date: 20240729
  Transmission Date: 20241017
  Serious: Yes (Other)
  Sender: ASTRAZENECA
  Company Number: 2019SF10979

PATIENT
  Sex: Female

DRUGS (13)
  1. LYNPARZA [Suspect]
     Active Substance: OLAPARIB
     Route: 048
  2. LYNPARZA [Suspect]
     Active Substance: OLAPARIB
     Route: 048
  3. LYNPARZA [Suspect]
     Active Substance: OLAPARIB
     Route: 048
  4. LYNPARZA [Suspect]
     Active Substance: OLAPARIB
     Route: 048
  5. METOPROLOL SUCCINATE [Suspect]
     Active Substance: METOPROLOL SUCCINATE
     Route: 048
  6. LISINOPRIL [Suspect]
     Active Substance: LISINOPRIL
     Route: 048
  7. ALENDRONATE SODIUM [Concomitant]
     Active Substance: ALENDRONATE SODIUM
  8. AMLODIPINE [Concomitant]
     Active Substance: AMLODIPINE BESYLATE
  9. ASPIRIN [Concomitant]
     Active Substance: ASPIRIN
  10. ATORVASTATIN CALCIUM [Concomitant]
     Active Substance: ATORVASTATIN CALCIUM
  11. CALCIUM [Concomitant]
     Active Substance: CALCIUM
  12. CYANOCOBALAMIN [Concomitant]
     Active Substance: CYANOCOBALAMIN
  13. PROCHLORPERAZINE [Concomitant]
     Active Substance: PROCHLORPERAZINE

REACTIONS (11)
  - Ovarian cancer [Unknown]
  - Adnexa uteri mass [Unknown]
  - Carbohydrate antigen 125 increased [Unknown]
  - Metastases to peritoneum [Unknown]
  - Hernia [Unknown]
  - Retroperitoneal lymphadenopathy [Unknown]
  - Anaemia [Unknown]
  - Neuropathy peripheral [Unknown]
  - Decreased appetite [Unknown]
  - Nausea [Unknown]
  - Anaemia of chronic disease [Unknown]
